FAERS Safety Report 7333162-7 (Version None)
Quarter: 2011Q1

REPORT INFORMATION
  Report Type: 
  Country: None (occurrence: None)
  Receive Date: 20110304
  Receipt Date: 20110301
  Transmission Date: 20110831
  Serious: Yes (Other)
  Sender: FDA-Public Use
  Company Number: US-ABBOTT-11P-163-0708491-00

PATIENT
  Sex: Female
  Weight: 114.41 kg

DRUGS (9)
  1. FOLIC ACID [Concomitant]
     Indication: VITAMIN SUPPLEMENTATION
  2. UNKNOWN BLOOD PRESSURE MEDICATION [Concomitant]
     Indication: HYPERTENSION
  3. POTASSIUM CHLORIDE [Concomitant]
     Indication: MINERAL SUPPLEMENTATION
  4. HUMIRA [Suspect]
     Indication: RHEUMATOID ARTHRITIS
     Dates: start: 20081001
  5. METHOTREXATE [Concomitant]
     Indication: RHEUMATOID ARTHRITIS
  6. FUROSEMIDE [Concomitant]
     Indication: HYPERTENSION
  7. OSCAL [Concomitant]
     Indication: MINERAL SUPPLEMENTATION
  8. PROTONIX [Concomitant]
     Indication: GASTROOESOPHAGEAL REFLUX DISEASE
  9. CITALOPRAM [Concomitant]
     Indication: DEPRESSION

REACTIONS (7)
  - DYSPNOEA [None]
  - LETHARGY [None]
  - PARAESTHESIA [None]
  - DYSARTHRIA [None]
  - CHEST PAIN [None]
  - HYPOAESTHESIA [None]
  - CHEST DISCOMFORT [None]
